FAERS Safety Report 11507958 (Version 2)
Quarter: 2015Q4

REPORT INFORMATION
  Report Type: Report from Study
  Country: BR (occurrence: BR)
  Receive Date: 20150915
  Receipt Date: 20151001
  Transmission Date: 20160304
  Serious: Yes (Life-Threatening, Hospitalization, Other)
  Sender: FDA-Public Use
  Company Number: PHHY2015BR110017

PATIENT
  Age: 39 Year
  Sex: Female
  Weight: 72 kg

DRUGS (2)
  1. ACLASTA [Suspect]
     Active Substance: ZOLEDRONIC ACID
     Indication: BONE DENSITY DECREASED
     Dosage: 5 MG, Q12MO
     Route: 042
     Dates: start: 2009
  2. PREDNISOLONE. [Concomitant]
     Active Substance: PREDNISOLONE
     Indication: SYSTEMIC LUPUS ERYTHEMATOSUS
     Dosage: 0.5 DF, QD
     Route: 048

REACTIONS (8)
  - Malaise [Unknown]
  - Concomitant disease aggravated [Recovering/Resolving]
  - Coma [Recovering/Resolving]
  - Bone infarction [Not Recovered/Not Resolved]
  - Eating disorder [Unknown]
  - Systemic lupus erythematosus [Recovering/Resolving]
  - Osteonecrosis [Not Recovered/Not Resolved]
  - Feeding disorder [Recovering/Resolving]

NARRATIVE: CASE EVENT DATE: 2013
